FAERS Safety Report 20529947 (Version 11)
Quarter: 2025Q4

REPORT INFORMATION
  Report Type: Spontaneous
  Country: JP (occurrence: JP)
  Receive Date: 20220301
  Receipt Date: 20251006
  Transmission Date: 20260118
  Serious: Yes (Death, Hospitalization, Other)
  Sender: BRISTOL-MYERS SQUIBB COMPANY
  Company Number: JP-ONO-2022JP005193

PATIENT
  Age: 73 Year
  Sex: Male
  Weight: 55.9 kg

DRUGS (9)
  1. YERVOY [Suspect]
     Active Substance: IPILIMUMAB
     Indication: Non-small cell lung cancer recurrent
     Dosage: ONE TIME
     Dates: start: 20211221, end: 20211221
  2. OPDIVO [Suspect]
     Active Substance: NIVOLUMAB
     Indication: Non-small cell lung cancer recurrent
     Dosage: ONE TIME
     Dates: start: 20211221, end: 20211221
  3. OXYCODONE HYDROCHLORIDE [Concomitant]
     Active Substance: OXYCODONE HYDROCHLORIDE
     Indication: Product used for unknown indication
     Dosage: SUPPLY FOR 14 DAYS
  4. OXINORM 2.5mg (5% 0.5g) [Concomitant]
     Indication: Pain
     Dosage: ONE PACKAGE, 10 DAYS, 2.5 MG, PRN
  5. MAGNESIUM OXIDE [Concomitant]
     Active Substance: MAGNESIUM OXIDE
     Indication: Product used for unknown indication
     Dosage: AFTER BREAKFAST, LUNCH AND DINNER, SUPPLY FOR 14 DAYS, 330 MG, Q8H
  6. FAMOTIDINE [Concomitant]
     Active Substance: FAMOTIDINE
     Indication: Product used for unknown indication
     Dosage: AFTER BREAKFAST AND DINNER, SUPPLY FOR 14 DAYS, TABLET, ORALLY DISINTEGRATING, 20 MG, Q12H
  7. MIYA-BM [Concomitant]
     Active Substance: CLOSTRIDIUM BUTYRICUM SPORES STRAIN M-55
     Indication: Product used for unknown indication
     Dosage: AFTER BREAKFAST, LUNCH AND DINNER, SUPPLY FOR 14 DAYS
  8. OLANZAPINE [Concomitant]
     Active Substance: OLANZAPINE
     Indication: Product used for unknown indication
     Dosage: AFTER DINNER, SUPPLY FOR 14 DAYS, 2.5 MG, EVERYDAY
  9. ACETAMINOPHEN [Concomitant]
     Active Substance: ACETAMINOPHEN
     Indication: Product used for unknown indication
     Dosage: IN THE MORNING UPON WAKING, AFTER LUNCH AND DINNER, AND AT BEDTIME, SUPPLY FOR 14 DAYS, 500 MG, Q6H

REACTIONS (3)
  - Radiation pneumonitis [Recovering/Resolving]
  - Non-small cell lung cancer [Fatal]
  - Immune-mediated lung disease [Recovering/Resolving]

NARRATIVE: CASE EVENT DATE: 20211227
